FAERS Safety Report 5506588-1 (Version None)
Quarter: 2007Q4

REPORT INFORMATION
  Report Type: 
  Country: None (occurrence: None)
  Receive Date: 20071105
  Receipt Date: 20071031
  Transmission Date: 20080405
  Serious: Yes (Other)
  Sender: FDA-Public Use
  Company Number: PHNU2007DE02326

PATIENT
  Age: 82 Year
  Sex: Male
  Weight: 68 kg

DRUGS (8)
  1. GLIVEC [Suspect]
     Indication: CHRONIC MYELOID LEUKAEMIA
     Dosage: 400 MG/DAY
     Route: 048
     Dates: start: 20070104, end: 20070917
  2. GLIVEC [Suspect]
     Dosage: 800 MG, QD
     Route: 048
     Dates: start: 20070918
  3. TILIDINE [Concomitant]
     Indication: OSTEOPOROSIS
  4. DIOVAN [Concomitant]
     Indication: HYPERTENSION
  5. SULTANOL [Concomitant]
     Indication: ASTHMA
  6. ATROVENT [Concomitant]
     Indication: ASTHMA
  7. BECLOMETHASONE DIPROPIONATE [Concomitant]
     Indication: ASTHMA
  8. THYRONAJOD [Concomitant]

REACTIONS (6)
  - MUSCLE SPASMS [None]
  - NERVOUSNESS [None]
  - NEUROPATHY PERIPHERAL [None]
  - PARAESTHESIA [None]
  - POLYNEUROPATHY [None]
  - RESTLESSNESS [None]
